FAERS Safety Report 7968928-3 (Version None)
Quarter: 2011Q4

REPORT INFORMATION
  Report Type: 
  Country: None (occurrence: None)
  Receive Date: 20111209
  Receipt Date: 20111206
  Transmission Date: 20120403
  Serious: Yes (Other)
  Sender: FDA-Public Use
  Company Number: US-PFIZER INC-2011234107

PATIENT
  Sex: Male

DRUGS (2)
  1. ZOLOFT [Suspect]
     Indication: DEPRESSION
     Dosage: 50 MG, 2X/DAY
     Route: 048
     Dates: start: 20101222
  2. SUBOXONE [Concomitant]
     Dosage: 8MG/2MG, 2X/DAY

REACTIONS (2)
  - DRUG DEPENDENCE [None]
  - DEPRESSION [None]
